FAERS Safety Report 4576226-3 (Version None)
Quarter: 2005Q1

REPORT INFORMATION
  Report Type: 
  Country: None (occurrence: None)
  Receive Date: 20050119
  Receipt Date: 20041102
  Transmission Date: 20050727
  Serious: Yes (Hospitalization)
  Sender: FDA-Public Use
  Company Number: A03200403687

PATIENT
  Age: 67 Year
  Sex: Male
  Weight: 90.7194 kg

DRUGS (5)
  1. PLAVIX [Suspect]
     Indication: TRANSIENT ISCHAEMIC ATTACK
     Dosage: 75 MG QD - ORAL
     Route: 048
     Dates: start: 20020101, end: 20020101
  2. ACETYLSALICYLIC ACID [Concomitant]
  3. PHENYTOIN SODIUM [Concomitant]
  4. PHENOBARBITAL [Concomitant]
  5. LEVOTHYROXINE SODIUM [Concomitant]

REACTIONS (2)
  - NAUSEA [None]
  - URINARY BLADDER HAEMORRHAGE [None]
